FAERS Safety Report 7715300-7 (Version None)
Quarter: 2011Q3

REPORT INFORMATION
  Report Type: 
  Country: None (occurrence: None)
  Receive Date: 20110829
  Receipt Date: 20110826
  Transmission Date: 20111222
  Serious: Yes (Death, Other)
  Sender: FDA-Public Use
  Company Number: PHHY2011CN76036

PATIENT
  Age: 40 Year
  Sex: Male

DRUGS (1)
  1. GLEEVEC [Suspect]
     Indication: CHRONIC MYELOID LEUKAEMIA
     Dosage: 400 MG, ONCE A DAY
     Route: 048
     Dates: start: 20110811, end: 20110816

REACTIONS (2)
  - CARDIAC DISORDER [None]
  - DEATH [None]
